FAERS Safety Report 11235236 (Version 1)
Quarter: 2015Q3

REPORT INFORMATION
  Report Type: Spontaneous
  Country: US (occurrence: US)
  Receive Date: 20150702
  Receipt Date: 20150702
  Transmission Date: 20151125
  Serious: Yes (Hospitalization, Other)
  Sender: FDA-Public Use
  Company Number: US-GLAXOSMITHKLINE-US2015094999

PATIENT
  Age: 84 Year
  Sex: Male

DRUGS (1)
  1. PROMACTA [Suspect]
     Active Substance: ELTROMBOPAG OLAMINE
     Indication: PLATELET COUNT DECREASED
     Dosage: UNK
     Route: 048
     Dates: start: 201412

REACTIONS (6)
  - Post procedural infection [Recovered/Resolved]
  - Clostridium difficile infection [Recovered/Resolved]
  - Lymphadenectomy [Recovering/Resolving]
  - Cerebrovascular accident [Recovered/Resolved]
  - Gait disturbance [Recovering/Resolving]
  - Cancer surgery [Recovered/Resolved]

NARRATIVE: CASE EVENT DATE: 201506
